FAERS Safety Report 5933300-4 (Version None)
Quarter: 2008Q4

REPORT INFORMATION
  Report Type: 
  Country: None (occurrence: None)
  Receive Date: 20081028
  Receipt Date: 20081021
  Transmission Date: 20090506
  Serious: No
  Sender: FDA-Public Use
  Company Number: US-B.I. PHARMACEUTICALS,INC./RIDGEFIELD-2008-BP-16116BP

PATIENT
  Age: 5 Decade
  Sex: Female

DRUGS (1)
  1. MIRAPEX [Suspect]
     Dosage: .375MG

REACTIONS (2)
  - DEPRESSION [None]
  - MENTAL STATUS CHANGES [None]
